FAERS Safety Report 4916531-1 (Version None)
Quarter: 2006Q1

REPORT INFORMATION
  Report Type: 
  Country: None (occurrence: None)
  Receive Date: 20060216
  Receipt Date: 20060216
  Transmission Date: 20060701
  Serious: No
  Sender: FDA-Public Use
  Company Number: None

PATIENT
  Age: 72 Year
  Sex: Female
  Weight: 74.3899 kg

DRUGS (1)
  1. LOVENOX [Suspect]
     Indication: MYOCARDIAL INFARCTION
     Dosage: 60 MG SQ Q 12 H
     Route: 058
     Dates: start: 20060211, end: 20060212

REACTIONS (4)
  - INTERNATIONAL NORMALISED RATIO INCREASED [None]
  - POST PROCEDURAL HAEMORRHAGE [None]
  - PROCEDURAL SITE REACTION [None]
  - PROTHROMBIN TIME PROLONGED [None]
